FAERS Safety Report 21084508 (Version 1)
Quarter: 2022Q3

REPORT INFORMATION
  Report Type: Spontaneous
  Country: US (occurrence: US)
  Receive Date: 20220714
  Receipt Date: 20220714
  Transmission Date: 20221027
  Serious: No
  Sender: FDA-Public Use
  Company Number: US-JAZZ-2022-US-019546

PATIENT
  Sex: Male

DRUGS (1)
  1. EPIDIOLEX [Suspect]
     Active Substance: CANNABIDIOL
     Indication: Product used for unknown indication
     Dosage: GIVE 1 ML TWICE PER DAY AND GIVE 1 ML TWICE PER DAY AS NEEDED FOR SPILL OR VOMIT
     Route: 048

REACTIONS (1)
  - Treatment noncompliance [Unknown]
